FAERS Safety Report 7525381-1 (Version None)
Quarter: 2011Q2

REPORT INFORMATION
  Report Type: 
  Country: None (occurrence: None)
  Receive Date: 20110606
  Receipt Date: 20110516
  Transmission Date: 20111010
  Serious: Yes (Hospitalization)
  Sender: FDA-Public Use
  Company Number: GB-ROCHE-672987

PATIENT
  Sex: Female
  Weight: 89 kg

DRUGS (2)
  1. CAPECITABINE [Suspect]
     Dosage: CYCLE 4.
     Route: 048
  2. CAPECITABINE [Suspect]
     Indication: COLON CANCER
     Dosage: CYCLE SIX; DATE MOST RECENT DOSE GIVEN: 16 JANUARY 2010.
     Route: 048
     Dates: start: 20090909

REACTIONS (1)
  - INTERNATIONAL NORMALISED RATIO INCREASED [None]
